FAERS Safety Report 20050120 (Version 1)
Quarter: 2021Q4

REPORT INFORMATION
  Report Type: Spontaneous
  Country: JP (occurrence: None)
  Receive Date: 20211109
  Receipt Date: 20211109
  Transmission Date: 20220304
  Serious: Yes (Other)
  Sender: FDA-Public Use
  Company Number: 2021A797786

PATIENT
  Sex: Female

DRUGS (5)
  1. FASLODEX [Suspect]
     Active Substance: FULVESTRANT
     Indication: Breast cancer female
     Dosage: DOSE UNKNOWN
     Route: 030
  2. PALBOCICLIB [Suspect]
     Active Substance: PALBOCICLIB
     Dosage: DOSE UNKNOWN
     Route: 048
  3. LYNPARZA [Concomitant]
     Active Substance: OLAPARIB
     Dosage: DOSE UNKNOWN
     Route: 048
  4. DENOSUMAB(GENETICAL RECOMBINATION) [Concomitant]
     Dosage: DOSE UNKNOWN
     Route: 065
  5. FULVESTRANT [Concomitant]
     Active Substance: FULVESTRANT
     Dosage: DOSE UNKNOWN
     Route: 065

REACTIONS (5)
  - Gastric disorder [Unknown]
  - Gastric perforation [Unknown]
  - Neutrophil count decreased [Unknown]
  - Musculoskeletal discomfort [Unknown]
  - Diarrhoea [Unknown]
